FAERS Safety Report 4381172-4 (Version None)
Quarter: 2004Q2

REPORT INFORMATION
  Report Type: 
  Country: None (occurrence: None)
  Receive Date: 20040617
  Receipt Date: 20040617
  Transmission Date: 20050107
  Serious: Yes (Hospitalization)
  Sender: FDA-Public Use
  Company Number: None

PATIENT
  Age: 46 Year
  Sex: Female

DRUGS (3)
  1. METRONIDAZOLE 0.75 % BIOEQUIRALENUOF TWO [Suspect]
     Indication: ROSACEA
     Dosage: 1 APPLICATION BID TOPICAL
     Route: 061
     Dates: start: 20040316
  2. IRON [Concomitant]
  3. ACIDFEX [Concomitant]

REACTIONS (1)
  - HYSTERECTOMY [None]
